FAERS Safety Report 7741072-6 (Version None)
Quarter: 2011Q3

REPORT INFORMATION
  Report Type: 
  Country: None (occurrence: None)
  Receive Date: 20110909
  Receipt Date: 20110901
  Transmission Date: 20111222
  Serious: Yes (Life-Threatening)
  Sender: FDA-Public Use
  Company Number: HR-BAYER-2011-079871

PATIENT
  Age: 57 Year
  Sex: Female

DRUGS (5)
  1. CIPROFLOXACIN [Suspect]
     Indication: PYELONEPHRITIS ACUTE
     Dosage: UNK
  2. ACETAMINOPHEN [Concomitant]
     Indication: PYELONEPHRITIS
     Dosage: UNK UNK, PRN
  3. ACETAMINOPHEN [Concomitant]
     Indication: NEPHROLITHIASIS
  4. DICLOFENAC SODIUM [Concomitant]
     Indication: NEPHROLITHIASIS
  5. DICLOFENAC SODIUM [Concomitant]
     Indication: PYELONEPHRITIS

REACTIONS (7)
  - BODY TEMPERATURE INCREASED [None]
  - MUSCLE DISORDER [None]
  - PRURITUS [None]
  - EOSINOPHILIA [None]
  - DRUG RASH WITH EOSINOPHILIA AND SYSTEMIC SYMPTOMS [None]
  - RASH [None]
  - HEPATIC ENZYME INCREASED [None]
